FAERS Safety Report 14612745 (Version 1)
Quarter: 2018Q1

REPORT INFORMATION
  Report Type: Spontaneous
  Country: US (occurrence: US)
  Receive Date: 20180308
  Receipt Date: 20180308
  Transmission Date: 20180509
  Serious: Yes (Death)
  Sender: FDA-Public Use
  Company Number: US-JNJFOC-20180309226

PATIENT
  Sex: Male

DRUGS (20)
  1. AMOXICILLIN. [Concomitant]
     Active Substance: AMOXICILLIN
  2. IMBRUVICA [Suspect]
     Active Substance: IBRUTINIB
     Indication: CHRONIC LYMPHOCYTIC LEUKAEMIA
     Route: 048
     Dates: start: 20141015
  3. IMBRUVICA [Suspect]
     Active Substance: IBRUTINIB
     Indication: CHRONIC LYMPHOCYTIC LEUKAEMIA
     Route: 048
  4. LEVOTHYROXINE. [Concomitant]
     Active Substance: LEVOTHYROXINE
  5. SYMBICORT [Concomitant]
     Active Substance: BUDESONIDE\FORMOTEROL FUMARATE DIHYDRATE
  6. PROTONIX [Concomitant]
     Active Substance: PANTOPRAZOLE SODIUM
  7. MEGESTROL [Concomitant]
     Active Substance: MEGESTROL
  8. TARCEVA [Concomitant]
     Active Substance: ERLOTINIB HYDROCHLORIDE
  9. PROVENTIL [Concomitant]
     Active Substance: ALBUTEROL
  10. SPIRIVA [Concomitant]
     Active Substance: TIOTROPIUM BROMIDE MONOHYDRATE
  11. CRESTOR [Concomitant]
     Active Substance: ROSUVASTATIN CALCIUM
  12. BACTRIM [Concomitant]
     Active Substance: SULFAMETHOXAZOLE\TRIMETHOPRIM
  13. ALBUTEROL. [Concomitant]
     Active Substance: ALBUTEROL
  14. ONDANSETRON [Concomitant]
     Active Substance: ONDANSETRON
  15. SENOKOT [Concomitant]
     Active Substance: SENNOSIDES
  16. LOSARTAN. [Concomitant]
     Active Substance: LOSARTAN
  17. ACYCLOVIR. [Concomitant]
     Active Substance: ACYCLOVIR
  18. LORAZEPAM. [Concomitant]
     Active Substance: LORAZEPAM
  19. PROCHLORPERAZINE. [Concomitant]
     Active Substance: PROCHLORPERAZINE
  20. BENZONATATE. [Concomitant]
     Active Substance: BENZONATATE

REACTIONS (1)
  - Death [Fatal]
